FAERS Safety Report 20669936 (Version 1)
Quarter: 2022Q2

REPORT INFORMATION
  Report Type: Spontaneous
  Country: US (occurrence: US)
  Receive Date: 20220404
  Receipt Date: 20220404
  Transmission Date: 20220721
  Serious: No
  Sender: FDA-Public Use
  Company Number: US-PFIZER INC-202101269878

PATIENT
  Age: 56 Year
  Sex: Male
  Weight: 115.67 kg

DRUGS (1)
  1. ATORVASTATIN CALCIUM [Suspect]
     Active Substance: ATORVASTATIN CALCIUM
     Indication: Blood cholesterol increased
     Dosage: 40 MG, 1X/DAY

REACTIONS (1)
  - Blood cholesterol abnormal [Unknown]
